FAERS Safety Report 18163884 (Version 1)
Quarter: 2020Q3

REPORT INFORMATION
  Report Type: Spontaneous
  Country: US (occurrence: US)
  Receive Date: 20200818
  Receipt Date: 20200818
  Transmission Date: 20201103
  Serious: Yes (Hospitalization, Other)
  Sender: FDA-Public Use
  Company Number: US-OTSUKA-2018_025373

PATIENT
  Age: 44 Year
  Sex: Male

DRUGS (30)
  1. ALBUTEROL. [Concomitant]
     Active Substance: ALBUTEROL
     Indication: RESPIRATION ABNORMAL
     Dosage: 90 ?G, BID
     Route: 048
  2. SAXAGLIPTIN HYDROCHLORIDE. [Concomitant]
     Active Substance: SAXAGLIPTIN HYDROCHLORIDE
     Indication: DIABETES MELLITUS
     Dosage: 1 DF, QD
     Route: 048
  3. SIMVASTATIN. [Concomitant]
     Active Substance: SIMVASTATIN
     Indication: BLOOD CHOLESTEROL
     Dosage: UNK, QD AT BEDTIME
     Route: 048
  4. CEPHALEXIN. [Concomitant]
     Active Substance: CEPHALEXIN
     Indication: INJECTION
     Dosage: 500 MG, BID
     Route: 065
  5. AMOXICILLIN. [Concomitant]
     Active Substance: AMOXICILLIN
     Indication: INFECTION
     Dosage: 500 MG, BID
     Route: 048
  6. ACETAMINOPHEN. [Concomitant]
     Active Substance: ACETAMINOPHEN
     Indication: PAIN
     Dosage: 2 DF, TID AS NEEDED
     Route: 048
  7. ZOLPIDEM TARTRATE. [Concomitant]
     Active Substance: ZOLPIDEM TARTRATE
     Indication: SLEEP DISORDER
     Dosage: 10 MG, UNK (T BEDTIME)
     Route: 048
  8. AMMONIUM LACTATE. [Concomitant]
     Active Substance: AMMONIUM LACTATE
     Indication: DRY SKIN
     Dosage: UNK
     Route: 061
  9. ASPIRIN 81 [Concomitant]
     Active Substance: ASPIRIN
     Indication: THROMBOSIS
     Dosage: 1 DF, QD
     Route: 048
  10. UREA. [Concomitant]
     Active Substance: UREA
     Indication: DRY SKIN
     Dosage: UNK, QD
     Route: 061
  11. GABAPENTIN. [Concomitant]
     Active Substance: GABAPENTIN
     Indication: SEIZURE
     Dosage: 1 DF, TID
     Route: 048
  12. LISINOPRIL. [Concomitant]
     Active Substance: LISINOPRIL
     Indication: HYPERTENSIVE HEART DISEASE
     Dosage: 1 DF, QD
     Route: 048
  13. CYANOCOBALAMINE [Concomitant]
     Active Substance: CYANOCOBALAMIN
     Indication: VITAMIN SUPPLEMENTATION
     Dosage: 500 ?G, QD
     Route: 048
  14. SILDENAFIL CITRATE. [Concomitant]
     Active Substance: SILDENAFIL CITRATE
     Indication: ERECTILE DYSFUNCTION
     Dosage: 1 DF, TIW
     Route: 048
  15. CHOLECALCIFEROL [Concomitant]
     Active Substance: CHOLECALCIFEROL
     Indication: VITAMIN SUPPLEMENTATION
     Dosage: 1000 IU, QD
     Route: 048
  16. HYDROCODONE [Concomitant]
     Active Substance: HYDROCODONE
     Indication: PAIN
     Dosage: 7.5 MG, BID AS NEEDED
     Route: 048
  17. NYSTATIN. [Concomitant]
     Active Substance: NYSTATIN
     Indication: FUNGAL INFECTION
     Dosage: 500000 IU, BID
     Route: 048
  18. CLOTRIMAZOLE. [Concomitant]
     Active Substance: CLOTRIMAZOLE
     Indication: FUNGAL INFECTION
     Dosage: UNK
     Route: 061
  19. ABILIFY [Suspect]
     Active Substance: ARIPIPRAZOLE
     Indication: SCHIZOPHRENIA
     Dosage: 30 MG, UNK AT BEDTIME
     Route: 065
     Dates: start: 200101, end: 201804
  20. FISH OIL [Concomitant]
     Active Substance: FISH OIL
     Indication: SUPPLEMENTATION THERAPY
     Dosage: 3 DF, QD
     Route: 048
  21. HYDROCORTISONE. [Concomitant]
     Active Substance: HYDROCORTISONE
     Indication: SKIN DISORDER
     Dosage: UNK, BID AS NEEDED
     Route: 061
  22. METFORMIN HYDROCHLORIDE. [Concomitant]
     Active Substance: METFORMIN HYDROCHLORIDE
     Indication: DIABETES MELLITUS
     Dosage: 1 DF, BID (BEFORE MEALS WITH BREAKFAST AND SUPPER MEALS)
     Route: 048
  23. MUPIROCIN. [Concomitant]
     Active Substance: MUPIROCIN
     Indication: INJECTION
     Dosage: UNK, BID
     Route: 061
  24. LORAZEPAM. [Concomitant]
     Active Substance: LORAZEPAM
     Indication: ANXIETY
     Dosage: 1 MG, BID
     Route: 048
  25. NALOXONE HYDROCHLORIDE. [Concomitant]
     Active Substance: NALOXONE HYDROCHLORIDE
     Indication: DRUG ABUSE
     Dosage: 4 MG, UNK AS NEEDED
     Route: 045
  26. FUROSEMIDE. [Concomitant]
     Active Substance: FUROSEMIDE
     Indication: DIURETIC THERAPY
     Dosage: 1 DF, QD
     Route: 048
  27. AMLODIPINE BESYLATE. [Concomitant]
     Active Substance: AMLODIPINE BESYLATE
     Indication: HYPERTENSIVE HEART DISEASE
     Dosage: UNK, QD
     Route: 048
  28. IBUPROFEN. [Concomitant]
     Active Substance: IBUPROFEN
     Indication: INFLAMMATORY PAIN
     Dosage: 1 DF, AS NEEDED EVERY 8 HOURS
     Route: 048
  29. MENTHOL. [Concomitant]
     Active Substance: MENTHOL
     Indication: PAIN
     Dosage: UNK FOUR TIMES A DAY AAS NEEDED
     Route: 061
  30. SULPHAMETHOXAZOLE [Concomitant]
     Active Substance: SULFAMETHOXAZOLE
     Indication: INJECTION
     Dosage: 800 MG, BID
     Route: 048

REACTIONS (16)
  - Gambling disorder [Recovered/Resolved]
  - Suicide attempt [Recovered/Resolved]
  - Compulsive shopping [Recovered/Resolved]
  - Compulsive sexual behaviour [Recovered/Resolved]
  - Hypersexuality [Unknown]
  - Psychotic disorder [Recovered/Resolved]
  - Anhedonia [Unknown]
  - Obsessive-compulsive disorder [Unknown]
  - Condition aggravated [Unknown]
  - Suicidal ideation [Recovered/Resolved]
  - Anxiety [Unknown]
  - Homeless [Unknown]
  - Pain [Unknown]
  - Divorced [Unknown]
  - Economic problem [Unknown]
  - Emotional distress [Unknown]

NARRATIVE: CASE EVENT DATE: 20020131
